FAERS Safety Report 13695647 (Version 2)
Quarter: 2017Q3

REPORT INFORMATION
  Report Type: Spontaneous
  Country: IT (occurrence: IT)
  Receive Date: 20170627
  Receipt Date: 20170723
  Transmission Date: 20171127
  Serious: Yes (Other)
  Sender: FDA-Public Use
  Company Number: IT-MYLANLABS-2017M1037272

PATIENT

DRUGS (3)
  1. BUDESONIDE W/FORMOTEROL [Suspect]
     Active Substance: BUDESONIDE\FORMOTEROL
     Indication: INFLUENZA
     Route: 055
  2. MORNIFLUMATE [Interacting]
     Active Substance: MORNIFLUMATE
     Indication: INFLUENZA
     Route: 048
  3. IBUPROFEN. [Suspect]
     Active Substance: IBUPROFEN
     Indication: INFLUENZA
     Route: 048

REACTIONS (3)
  - Labelled drug-drug interaction medication error [Unknown]
  - Off label use [Unknown]
  - Gastritis erosive [Unknown]
